FAERS Safety Report 7289501-9 (Version None)
Quarter: 2011Q1

REPORT INFORMATION
  Report Type: 
  Country: None (occurrence: None)
  Receive Date: 20110211
  Receipt Date: 20110210
  Transmission Date: 20110831
  Serious: Yes (Life-Threatening, Hospitalization)
  Sender: FDA-Public Use
  Company Number: CA-MERCK-1102USA01322

PATIENT
  Age: 63 Year
  Sex: Male
  Weight: 150 kg

DRUGS (6)
  1. RESOURCE DIABETIC [Suspect]
     Route: 065
  2. PRAMIPEXOLE [Suspect]
     Route: 065
  3. TIMENTIN [Concomitant]
     Route: 065
  4. COMTAN [Concomitant]
     Route: 048
  5. SINEMET [Suspect]
     Route: 048
  6. HEPARIN SODIUM [Concomitant]
     Route: 065

REACTIONS (7)
  - BLOOD CREATINE PHOSPHOKINASE INCREASED [None]
  - MENTAL IMPAIRMENT [None]
  - RENAL IMPAIRMENT [None]
  - LEUKOCYTOSIS [None]
  - NEUROLEPTIC MALIGNANT SYNDROME [None]
  - FOOD INTERACTION [None]
  - PYREXIA [None]
